FAERS Safety Report 7947018-X (Version None)
Quarter: 2011Q4

REPORT INFORMATION
  Report Type: 
  Country: None (occurrence: None)
  Receive Date: 20111129
  Receipt Date: 20111017
  Transmission Date: 20120403
  Serious: No
  Sender: FDA-Public Use
  Company Number: US-ASTRAZENECA-2011SE62364

PATIENT
  Age: 79 Year
  Sex: Female
  Weight: 74.8 kg

DRUGS (1)
  1. VIMOVO [Suspect]
     Indication: PAIN
     Dosage: 375.2 MG/20 MG, TWO TIMES A DAY
     Route: 048

REACTIONS (2)
  - DRUG INEFFECTIVE [None]
  - PAIN [None]
